FAERS Safety Report 19804987 (Version 1)
Quarter: 2021Q3

REPORT INFORMATION
  Report Type: Report from Study
  Country: CA (occurrence: CA)
  Receive Date: 20210908
  Receipt Date: 20210908
  Transmission Date: 20211014
  Serious: Yes (Other)
  Sender: FDA-Public Use
  Company Number: CA-TAKEDA-2021TUS050538

PATIENT
  Age: 37 Year
  Sex: Female

DRUGS (5)
  1. CUVITRU [Suspect]
     Active Substance: HUMAN IMMUNOGLOBULIN G
     Indication: IMPLANTATION COMPLICATION
     Dosage: 8 GRAM, 1/WEEK
     Route: 065
     Dates: start: 20210809
  2. SYMBICORT [Concomitant]
     Active Substance: BUDESONIDE\FORMOTEROL FUMARATE DIHYDRATE
     Route: 065
  3. REACTIN [Concomitant]
     Route: 065
  4. MEGESTOL [Concomitant]
     Active Substance: MEGESTROL ACETATE
     Route: 065
  5. VENTOLIN [Concomitant]
     Active Substance: ALBUTEROL SULFATE
     Route: 065

REACTIONS (2)
  - Endometrial hyperplasia [Unknown]
  - Off label use [Unknown]

NARRATIVE: CASE EVENT DATE: 20210809
